FAERS Safety Report 6283325-7 (Version None)
Quarter: 2009Q3

REPORT INFORMATION
  Report Type: 
  Country: None (occurrence: None)
  Receive Date: 20090724
  Receipt Date: 20090713
  Transmission Date: 20100115
  Serious: Yes (Other)
  Sender: FDA-Public Use
  Company Number: LB-ROCHE-645698

PATIENT
  Age: 9 Year
  Sex: Male

DRUGS (4)
  1. ALL-TRANS-RETINOIC ACID [Suspect]
     Route: 065
  2. ARA-C [Suspect]
     Route: 065
  3. DAUNORUBICIN HCL [Suspect]
     Route: 065
  4. MERCAPTOPURINE [Suspect]
     Route: 065

REACTIONS (1)
  - CAECITIS [None]
